FAERS Safety Report 12546551 (Version 1)
Quarter: 2016Q3

REPORT INFORMATION
  Report Type: Report from Study
  Country: JP (occurrence: JP)
  Receive Date: 20160711
  Receipt Date: 20160711
  Transmission Date: 20161109
  Serious: Yes (Hospitalization)
  Sender: FDA-Public Use
  Company Number: JP-SA-2016SA124273

PATIENT
  Age: 59 Year
  Sex: Male
  Weight: 58.4 kg

DRUGS (6)
  1. PLAVIX [Suspect]
     Active Substance: CLOPIDOGREL BISULFATE
     Indication: ARTERIAL OCCLUSIVE DISEASE
     Route: 065
     Dates: end: 20130206
  2. PLAVIX [Suspect]
     Active Substance: CLOPIDOGREL BISULFATE
     Indication: ARTERIAL OCCLUSIVE DISEASE
     Route: 065
     Dates: start: 20130207, end: 20140423
  3. GASTER [Concomitant]
     Active Substance: FAMOTIDINE
     Dates: end: 20140423
  4. CALBLOCK [Concomitant]
     Active Substance: AZELNIDIPINE
     Dates: start: 20131115
  5. LACTEC [Concomitant]
     Active Substance: CALCIUM CHLORIDE ANHYDROUS\POTASSIUM CHLORIDE\SODIUM CHLORIDE\SODIUM LACTATE
     Dates: start: 20130403, end: 20130403
  6. LIVALO [Concomitant]
     Active Substance: PITAVASTATIN CALCIUM

REACTIONS (2)
  - Cerebral infarction [Recovering/Resolving]
  - Cerebral infarction [Not Recovered/Not Resolved]

NARRATIVE: CASE EVENT DATE: 20130403
